FAERS Safety Report 4701193-9 (Version None)
Quarter: 2005Q2

REPORT INFORMATION
  Report Type: 
  Country: None (occurrence: None)
  Receive Date: 20050628
  Receipt Date: 20050615
  Transmission Date: 20051028
  Serious: Yes (Death)
  Sender: FDA-Public Use
  Company Number: SEWYE748816JUN05

PATIENT
  Sex: Male

DRUGS (3)
  1. ENBREL [Suspect]
     Indication: DRUG USE FOR UNKNOWN INDICATION
     Route: 058
     Dates: start: 20040712, end: 20041108
  2. LOSEC [Concomitant]
     Indication: DYSPEPSIA
     Dosage: THE DOSE REGIMEN WAS NOT SPECIFIED
     Route: 048
  3. TRAMADOL HCL [Concomitant]
     Indication: PAIN
     Dosage: THE DOSE REGIMEN WAS NOT SPECIFIED
     Route: 048

REACTIONS (1)
  - SEPSIS [None]
